FAERS Safety Report 7768391-1 (Version None)
Quarter: 2011Q3

REPORT INFORMATION
  Report Type: 
  Country: None (occurrence: None)
  Receive Date: 20110922
  Receipt Date: 20101118
  Transmission Date: 20111222
  Serious: No
  Sender: FDA-Public Use
  Company Number: US-ASTRAZENECA-2010SE55122

PATIENT
  Age: 47 Year
  Sex: Male

DRUGS (8)
  1. SIMVASTATIN [Concomitant]
     Indication: CARDIAC DISORDER
  2. SEROQUEL [Suspect]
     Indication: BIPOLAR I DISORDER
     Route: 048
     Dates: start: 20100201, end: 20101001
  3. METOPROLOL TARTRATE [Concomitant]
     Indication: CARDIAC DISORDER
  4. SEROQUEL [Suspect]
     Dosage: HS
     Route: 048
     Dates: start: 20101001
  5. LISINOPRIL [Concomitant]
     Indication: CARDIAC DISORDER
  6. ASPIRIN [Concomitant]
     Indication: CARDIAC DISORDER
  7. PLAVIX [Concomitant]
     Indication: CARDIAC DISORDER
  8. LAMICTAL HS [Concomitant]
     Indication: BIPOLAR I DISORDER

REACTIONS (2)
  - SOMNOLENCE [None]
  - WRONG TECHNIQUE IN DRUG USAGE PROCESS [None]
